FAERS Safety Report 25339277 (Version 1)
Quarter: 2025Q2

REPORT INFORMATION
  Report Type: Spontaneous
  Country: US (occurrence: US)
  Receive Date: 20250521
  Receipt Date: 20250521
  Transmission Date: 20250717
  Serious: Yes (Other)
  Sender: AUROBINDO
  Company Number: US-AUROBINDO-AUR-APL-2025-025426

PATIENT
  Age: 74 Year
  Sex: Female

DRUGS (3)
  1. NAPROXEN [Suspect]
     Active Substance: NAPROXEN
     Indication: Fibromyalgia
     Route: 065
  2. ASPIRIN [Concomitant]
     Active Substance: ASPIRIN
     Indication: Fibromyalgia
     Route: 065
  3. COLCHICINE [Concomitant]
     Active Substance: COLCHICINE
     Indication: Fibromyalgia
     Route: 065

REACTIONS (6)
  - Melaena [Unknown]
  - Anastomotic ulcer [Unknown]
  - Fistula [Unknown]
  - Gastric fistula [Unknown]
  - Intentional product misuse [Unknown]
  - Intentional overdose [Unknown]
